FAERS Safety Report 8432950-3 (Version None)
Quarter: 2012Q2

REPORT INFORMATION
  Report Type: 
  Country: None (occurrence: None)
  Receive Date: 20120613
  Receipt Date: 20120608
  Transmission Date: 20120825
  Serious: Yes (Life-Threatening, Hospitalization)
  Sender: FDA-Public Use
  Company Number: IT-ROCHE-1069636

PATIENT
  Sex: Male

DRUGS (14)
  1. MABTHERA [Suspect]
     Route: 041
     Dates: start: 20100507, end: 20101110
  2. CYTARABINE [Suspect]
     Indication: LYMPHOMA
     Route: 041
     Dates: start: 20100903
  3. ETOPOSIDE [Suspect]
     Indication: LYMPHOMA
     Dates: start: 20100903, end: 20100905
  4. CARBOPLATIN [Suspect]
     Indication: LYMPHOMA
     Route: 041
     Dates: start: 20100903, end: 20100903
  5. GEMCITABINE HYDROCHLORIDE [Suspect]
     Indication: LYMPHOMA
     Route: 041
     Dates: start: 20101016, end: 20101019
  6. IFOSFAMIDE [Suspect]
     Indication: LYMPHOMA
     Route: 041
     Dates: start: 20101016, end: 20101019
  7. METHYLPREDNISOLONE [Suspect]
     Dates: start: 20101111, end: 20101114
  8. MABTHERA [Suspect]
     Indication: LYMPHOMA
     Dosage: VIAL 500 MG/50 ML
     Route: 041
     Dates: start: 20100507, end: 20101005
  9. IFOSFAMIDE [Suspect]
     Dates: start: 20101111, end: 20101114
  10. VINORELBINE [Suspect]
     Indication: LYMPHOMA
     Route: 041
     Dates: start: 20101019, end: 20101020
  11. GEMCITABINE HYDROCHLORIDE [Suspect]
     Route: 041
     Dates: start: 20101111, end: 20101114
  12. MABTHERA [Suspect]
     Dosage: VIAL 500 MG 50 ML
     Route: 041
     Dates: end: 20101015
  13. VINORELBINE [Suspect]
     Dates: start: 20101111, end: 20101114
  14. METHYLPREDNISOLONE [Suspect]
     Indication: LYMPHOMA
     Route: 041
     Dates: start: 20101016, end: 20101019

REACTIONS (5)
  - HYPOTENSION [None]
  - INTERSTITIAL LUNG DISEASE [None]
  - PNEUMONIA [None]
  - FEBRILE NEUTROPENIA [None]
  - CHILLS [None]
